FAERS Safety Report 10111712 (Version 1)
Quarter: 2014Q2

REPORT INFORMATION
  Report Type: Spontaneous
  Country: US (occurrence: US)
  Receive Date: 20140425
  Receipt Date: 20140425
  Transmission Date: 20141212
  Serious: No
  Sender: FDA-Public Use
  Company Number: US-TEVA-478148USA

PATIENT
  Age: 45 Year
  Sex: Female
  Weight: 74.91 kg

DRUGS (4)
  1. NUVIGIL [Suspect]
     Indication: NARCOLEPSY
     Route: 048
     Dates: start: 201401, end: 201402
  2. LUNESTA [Concomitant]
     Indication: INSOMNIA
     Dosage: 3 MILLIGRAM DAILY;
  3. VITAMINS [Concomitant]
     Indication: NUTRITIONAL SUPPLEMENTATION
  4. VITAMIN D [Concomitant]
     Indication: VITAMIN D DEFICIENCY
     Dosage: 2142.8571 IU (INTERNATIONAL UNIT) DAILY;
     Route: 048

REACTIONS (2)
  - Headache [Not Recovered/Not Resolved]
  - Vitamin D decreased [Not Recovered/Not Resolved]
